FAERS Safety Report 10191789 (Version 1)
Quarter: 2014Q2

REPORT INFORMATION
  Report Type: Spontaneous
  Country: US (occurrence: None)
  Receive Date: 20140522
  Receipt Date: 20140522
  Transmission Date: 20141212
  Serious: No
  Sender: FDA-Public Use
  Company Number: None

PATIENT
  Age: 78 Year
  Sex: Male

DRUGS (1)
  1. NEXAVAR 200 MG BAYER [Suspect]
     Indication: HEPATIC CANCER
     Dosage: 2 TABLETS TWICE DCAILY.
     Route: 048
     Dates: start: 20140424, end: 20140510

REACTIONS (3)
  - Pain [None]
  - Decreased appetite [None]
  - Weight decreased [None]
